FAERS Safety Report 20378674 (Version 1)
Quarter: 2022Q1

REPORT INFORMATION
  Report Type: Spontaneous
  Country: GB (occurrence: None)
  Receive Date: 20220126
  Receipt Date: 20220126
  Transmission Date: 20220423
  Serious: Yes (Hospitalization)
  Sender: FDA-Public Use
  Company Number: 2022A032107

PATIENT
  Age: 82 Year
  Sex: Female

DRUGS (25)
  1. DAPAGLIFLOZIN [Suspect]
     Active Substance: DAPAGLIFLOZIN
     Indication: Cardiac failure
     Route: 065
  2. BISOPROLOL [Concomitant]
     Active Substance: BISOPROLOL
     Dates: end: 20220118
  3. BISOPROLOL [Concomitant]
     Active Substance: BISOPROLOL
  4. BISOPROLOL [Concomitant]
     Active Substance: BISOPROLOL
  5. BISOPROLOL [Concomitant]
     Active Substance: BISOPROLOL
  6. BISOPROLOL [Concomitant]
     Active Substance: BISOPROLOL
  7. BUMETANIDE [Concomitant]
     Active Substance: BUMETANIDE
  8. DAPAGLIFLOZIN [Concomitant]
     Active Substance: DAPAGLIFLOZIN
     Dates: start: 20220118
  9. MEBEVERINE [Concomitant]
     Active Substance: MEBEVERINE
     Dosage: PREFERABLY 20 MINUTES BEFORE MEALS
  10. RAMIPRIL [Concomitant]
     Active Substance: RAMIPRIL
  11. RAMIPRIL [Concomitant]
     Active Substance: RAMIPRIL
     Dosage: EVERY MORNING
     Dates: start: 20220118
  12. RAMIPRIL [Concomitant]
     Active Substance: RAMIPRIL
  13. RAMIPRIL [Concomitant]
     Active Substance: RAMIPRIL
  14. RIVAROXABAN [Concomitant]
     Active Substance: RIVAROXABAN
  15. RIVAROXABAN [Concomitant]
     Active Substance: RIVAROXABAN
  16. RIVAROXABAN [Concomitant]
     Active Substance: RIVAROXABAN
  17. RIVAROXABAN [Concomitant]
     Active Substance: RIVAROXABAN
  18. SIMVASTATIN [Concomitant]
     Active Substance: SIMVASTATIN
  19. SIMVASTATIN [Concomitant]
     Active Substance: SIMVASTATIN
  20. SIMVASTATIN [Concomitant]
     Active Substance: SIMVASTATIN
  21. SIMVASTATIN [Concomitant]
     Active Substance: SIMVASTATIN
  22. SPIRONOLACTONE [Concomitant]
     Active Substance: SPIRONOLACTONE
  23. SPIRONOLACTONE [Concomitant]
     Active Substance: SPIRONOLACTONE
  24. SPIRONOLACTONE [Concomitant]
     Active Substance: SPIRONOLACTONE
  25. SPIRONOLACTONE [Concomitant]
     Active Substance: SPIRONOLACTONE

REACTIONS (1)
  - Ketoacidosis [Unknown]
